FAERS Safety Report 7135059-4 (Version None)
Quarter: 2010Q4

REPORT INFORMATION
  Report Type: 
  Country: None (occurrence: None)
  Receive Date: 20101203
  Receipt Date: 20101125
  Transmission Date: 20110411
  Serious: Yes (Other)
  Sender: FDA-Public Use
  Company Number: TT-ABBOTT-10P-159-0682905-00

PATIENT
  Age: 22 Year
  Sex: Female
  Weight: 72.64 kg

DRUGS (3)
  1. DEPAKOTE [Suspect]
     Indication: BIPOLAR DISORDER
     Dates: start: 20040101, end: 20101001
  2. DEPAKOTE [Suspect]
     Dosage: 100 DOSAGE FORM TABLETS ONCE
     Route: 048
     Dates: start: 20101001
  3. SEROQUEL [Concomitant]
     Indication: BIPOLAR DISORDER
     Dosage: OD

REACTIONS (7)
  - AGGRESSION [None]
  - AMNESIA [None]
  - COMA [None]
  - FEELING OF BODY TEMPERATURE CHANGE [None]
  - HYPOMANIA [None]
  - INTENTIONAL OVERDOSE [None]
  - SEDATION [None]
